FAERS Safety Report 20393464 (Version 2)
Quarter: 2023Q1

REPORT INFORMATION
  Report Type: Report from Study
  Country: US (occurrence: US)
  Receive Date: 20220128
  Receipt Date: 20230314
  Transmission Date: 20230418
  Serious: Yes (Other)
  Sender: FDA-Public Use
  Company Number: US-JAZZ-2022-US-000564

PATIENT
  Sex: Male
  Weight: 77 kg

DRUGS (1)
  1. XYWAV [Suspect]
     Active Substance: CALCIUM OXYBATE\MAGNESIUM OXYBATE\POTASSIUM OXYBATE\SODIUM OXYBATE
     Indication: Narcolepsy
     Dosage: 4.5 GRAM, BID
     Route: 048
     Dates: start: 202012

REACTIONS (4)
  - Upper limb fracture [Unknown]
  - Weight decreased [Unknown]
  - Blood cholesterol increased [Recovered/Resolved]
  - Intentional dose omission [Unknown]
